FAERS Safety Report 19369758 (Version 1)
Quarter: 2021Q2

REPORT INFORMATION
  Report Type: Report from Study
  Country: IE (occurrence: IE)
  Receive Date: 20210604
  Receipt Date: 20210604
  Transmission Date: 20210717
  Serious: Yes (Other)
  Sender: FDA-Public Use
  Company Number: IE-JNJFOC-20210603916

PATIENT
  Age: 75 Year
  Sex: Female

DRUGS (11)
  1. STELARA [Suspect]
     Active Substance: USTEKINUMAB
  2. TRAJENTA [Concomitant]
     Active Substance: LINAGLIPTIN
     Route: 050
  3. COVERSYL [PERINDOPRIL ERBUMINE] [Concomitant]
     Active Substance: PERINDOPRIL ERBUMINE
     Route: 050
  4. FUROSEMIDE. [Concomitant]
     Active Substance: FUROSEMIDE
     Route: 050
  5. GLUCOPHAGE [Concomitant]
     Active Substance: METFORMIN HYDROCHLORIDE
     Route: 050
  6. BISOPROLOL [Concomitant]
     Active Substance: BISOPROLOL
     Route: 050
  7. ASPIRIN [ACETYLSALICYLIC ACID] [Concomitant]
     Active Substance: ASPIRIN
     Route: 050
  8. DIAMICRON [Concomitant]
     Active Substance: GLICLAZIDE
     Route: 050
  9. CEFALEXIN [Concomitant]
     Active Substance: CEPHALEXIN
     Route: 050
  10. PREDNISOLONE. [Concomitant]
     Active Substance: PREDNISOLONE
     Route: 050
  11. STELARA [Suspect]
     Active Substance: USTEKINUMAB
     Indication: CROHN^S DISEASE
     Dosage: LAST ADMINISTERED: 01?JUN?2021
     Route: 058
     Dates: start: 20210406

REACTIONS (1)
  - Kidney infection [Recovering/Resolving]

NARRATIVE: CASE EVENT DATE: 202105
